FAERS Safety Report 5817934-3 (Version None)
Quarter: 2008Q3

REPORT INFORMATION
  Report Type: 
  Country: None (occurrence: None)
  Receive Date: 20080722
  Receipt Date: 20070719
  Transmission Date: 20090109
  Serious: Yes (Other)
  Sender: FDA-Public Use
  Company Number: US-BAYER-US-2007-025523

PATIENT
  Age: 16 Year
  Sex: Male
  Weight: 82 kg

DRUGS (2)
  1. MAGNEVIST [Suspect]
     Indication: NUCLEAR MAGNETIC RESONANCE IMAGING
     Dosage: UNIT DOSE: 16 ML
     Route: 042
     Dates: start: 20070709, end: 20070709
  2. AMOXICILLIN [Concomitant]
     Indication: PHARYNGITIS STREPTOCOCCAL

REACTIONS (6)
  - ANGIOEDEMA [None]
  - DYSPNOEA [None]
  - FEELING HOT [None]
  - GENERALISED ERYTHEMA [None]
  - LIP SWELLING [None]
  - URTICARIA [None]
